FAERS Safety Report 17210116 (Version 3)
Quarter: 2020Q4

REPORT INFORMATION
  Report Type: Spontaneous
  Country: US (occurrence: US)
  Receive Date: 20191227
  Receipt Date: 20201020
  Transmission Date: 20210113
  Serious: Yes (Death)
  Sender: FDA-Public Use
  Company Number: US-PFIZER INC-2019552428

PATIENT
  Age: 76 Year
  Sex: Female
  Weight: 66.22 kg

DRUGS (2)
  1. XALKORI [Suspect]
     Active Substance: CRIZOTINIB
     Indication: LARGE CELL LUNG CANCER STAGE IV
     Dosage: UNK
     Dates: start: 20191024
  2. XALKORI [Suspect]
     Active Substance: CRIZOTINIB
     Dosage: 250 MG, 2X/DAY
     Route: 048
     Dates: start: 20191025

REACTIONS (6)
  - Skin discolouration [Unknown]
  - Death [Fatal]
  - Dizziness [Unknown]
  - Off label use [Unknown]
  - Mood swings [Unknown]
  - Wrong technique in product usage process [Unknown]

NARRATIVE: CASE EVENT DATE: 201912
